FAERS Safety Report 8615794-9 (Version None)
Quarter: 2012Q3

REPORT INFORMATION
  Report Type: 
  Country: None (occurrence: None)
  Receive Date: 20120823
  Receipt Date: 20120814
  Transmission Date: 20120928
  Serious: No
  Sender: FDA-Public Use
  Company Number: US-ASTRAZENECA-2012SE57728

PATIENT
  Age: 35 Year
  Sex: Female

DRUGS (3)
  1. CRESTOR [Suspect]
     Route: 048
  2. LIPITOR [Concomitant]
  3. NEXIUM [Suspect]
     Route: 048

REACTIONS (4)
  - BLOOD TRIGLYCERIDES ABNORMAL [None]
  - PAIN IN EXTREMITY [None]
  - BACK PAIN [None]
  - DRUG DOSE OMISSION [None]
